FAERS Safety Report 8145160-4 (Version None)
Quarter: 2012Q1

REPORT INFORMATION
  Report Type: 
  Country: None (occurrence: None)
  Receive Date: 20120217
  Receipt Date: 20120213
  Transmission Date: 20120608
  Serious: Yes (Other)
  Sender: FDA-Public Use
  Company Number: PHHY2012DE012917

PATIENT
  Age: 71 Year
  Sex: Female

DRUGS (2)
  1. ZOLEDRONOC ACID [Suspect]
     Dosage: 5 MG, YEARLY
     Route: 042
     Dates: start: 20090401
  2. ZOLEDRONOC ACID [Suspect]
     Dosage: 5 MG, YEARLY
     Route: 042
     Dates: start: 20060101

REACTIONS (2)
  - DENTAL CARIES [None]
  - PAIN [None]
